FAERS Safety Report 6256205-0 (Version None)
Quarter: 2009Q3

REPORT INFORMATION
  Report Type: 
  Country: None (occurrence: None)
  Receive Date: 20090706
  Receipt Date: 20090629
  Transmission Date: 20100115
  Serious: Yes (Death, Other)
  Sender: FDA-Public Use
  Company Number: PHHY2009BR26105

PATIENT
  Sex: Male

DRUGS (2)
  1. FORASEQ [Suspect]
  2. CORTICOSTEROIDS [Concomitant]

REACTIONS (5)
  - ASCITES [None]
  - ASTHMA [None]
  - CARDIOMYOPATHY [None]
  - METASTASES TO LIVER [None]
  - PANCREATIC CARCINOMA [None]
